FAERS Safety Report 5001298-1 (Version None)
Quarter: 2006Q2

REPORT INFORMATION
  Report Type: 
  Country: None (occurrence: None)
  Receive Date: 20060512
  Receipt Date: 20060206
  Transmission Date: 20061013
  Serious: Yes (Other)
  Sender: FDA-Public Use
  Company Number: GB-MERCK-0602GBR00055

PATIENT
  Sex: Male
  Weight: 99 kg

DRUGS (4)
  1. VIOXX [Suspect]
     Indication: OSTEOARTHRITIS
     Route: 048
     Dates: start: 19990813, end: 20040204
  2. ASPIRIN [Concomitant]
     Route: 065
  3. NITROGLYCERIN [Concomitant]
     Indication: ANGINA PECTORIS
     Route: 065
  4. RAMIPRIL [Concomitant]
     Indication: CARDIAC DISORDER
     Route: 065

REACTIONS (1)
  - MYOCARDIAL INFARCTION [None]
